FAERS Safety Report 5688590-2 (Version None)
Quarter: 2008Q1

REPORT INFORMATION
  Report Type: 
  Country: None (occurrence: None)
  Receive Date: 20080331
  Receipt Date: 20080318
  Transmission Date: 20080703
  Serious: Yes (Hospitalization)
  Sender: FDA-Public Use
  Company Number: PHHY2008JP01237

PATIENT
  Age: 9 Year
  Sex: Male

DRUGS (5)
  1. SIMULECT [Concomitant]
     Indication: RENAL TRANSPLANT
     Dosage: 20 MG/DAY
     Route: 042
     Dates: start: 20071211
  2. CELLCEPT [Concomitant]
     Indication: RENAL TRANSPLANT
     Route: 048
     Dates: start: 20071211
  3. MEDROL [Concomitant]
     Indication: RENAL TRANSPLANT
     Route: 048
     Dates: start: 20071211, end: 20080101
  4. DIFLUCAN [Concomitant]
     Route: 048
     Dates: start: 20071211
  5. NEORAL [Suspect]
     Indication: RENAL TRANSPLANT
     Dosage: UNK, UNK
     Route: 048
     Dates: start: 20071211

REACTIONS (6)
  - ANGIOPLASTY [None]
  - BLOOD ALDOSTERONE INCREASED [None]
  - HYPERTENSION [None]
  - RENAL ARTERY STENOSIS [None]
  - RENAL VESSEL DISORDER [None]
  - RENIN INCREASED [None]
